FAERS Safety Report 13050115 (Version 1)
Quarter: 2016Q4

REPORT INFORMATION
  Report Type: Spontaneous
  Country: GB (occurrence: GB)
  Receive Date: 20161221
  Receipt Date: 20161221
  Transmission Date: 20170207
  Serious: Yes (Other)
  Sender: FDA-Public Use
  Company Number: GB-TEVA-720636ACC

PATIENT
  Age: 32 Year
  Sex: Female
  Weight: 86 kg

DRUGS (1)
  1. TEVA UK LAMOTRIGINE [Suspect]
     Active Substance: LAMOTRIGINE
     Dosage: 100MG AND 50MG
     Dates: start: 20161125

REACTIONS (6)
  - Malaise [Not Recovered/Not Resolved]
  - Dizziness [Not Recovered/Not Resolved]
  - Feeling cold [Not Recovered/Not Resolved]
  - Headache [Not Recovered/Not Resolved]
  - Decreased appetite [Not Recovered/Not Resolved]
  - Product substitution issue [Unknown]

NARRATIVE: CASE EVENT DATE: 20161126
